FAERS Safety Report 22538768 (Version 1)
Quarter: 2023Q2

REPORT INFORMATION
  Report Type: Spontaneous
  Country: ES (occurrence: ES)
  Receive Date: 20230609
  Receipt Date: 20230609
  Transmission Date: 20230721
  Serious: Yes (Hospitalization)
  Sender: FDA-Public Use
  Company Number: None

PATIENT
  Age: 86 Year
  Sex: Female

DRUGS (1)
  1. PANTOPRAZOLE [Suspect]
     Active Substance: PANTOPRAZOLE
     Indication: Chronic gastritis
     Dosage: 40 MILLIGRAM DAILY; 40MG 1-0-0, PANTOPRAZOL (7275A)
     Route: 065
     Dates: start: 20180315, end: 20221005

REACTIONS (2)
  - Tubulointerstitial nephritis [Not Recovered/Not Resolved]
  - Chronic kidney disease [Not Recovered/Not Resolved]

NARRATIVE: CASE EVENT DATE: 20220906
